FAERS Safety Report 6182794-0 (Version None)
Quarter: 2009Q2

REPORT INFORMATION
  Report Type: 
  Country: None (occurrence: None)
  Receive Date: 20090505
  Receipt Date: 20090421
  Transmission Date: 20091009
  Serious: Yes (Other)
  Sender: FDA-Public Use
  Company Number: 340002M09IRL

PATIENT
  Sex: Female

DRUGS (1)
  1. OVITRELLE (CHORIOGONADOTROPIN ALFA) [Suspect]

REACTIONS (1)
  - DRUG INEFFECTIVE [None]
